FAERS Safety Report 18094712 (Version 2)
Quarter: 2020Q3

REPORT INFORMATION
  Report Type: Spontaneous
  Country: AR (occurrence: AR)
  Receive Date: 20200730
  Receipt Date: 20200810
  Transmission Date: 20201103
  Serious: No
  Sender: FDA-Public Use
  Company Number: AR-PFIZER INC-2020289151

PATIENT
  Age: 84 Year
  Sex: Female

DRUGS (2)
  1. XELJANZ [Suspect]
     Active Substance: TOFACITINIB CITRATE
     Indication: RHEUMATOID ARTHRITIS
     Dosage: 5 MG, 2X/DAY
     Dates: start: 20131226
  2. NOSTER D [Concomitant]
     Indication: BLOOD PRESSURE INCREASED
     Dosage: UNK

REACTIONS (3)
  - Arthralgia [Unknown]
  - Joint swelling [Unknown]
  - Visual impairment [Unknown]
